FAERS Safety Report 4943693-2 (Version None)
Quarter: 2006Q1

REPORT INFORMATION
  Report Type: 
  Country: None (occurrence: None)
  Receive Date: 20060314
  Receipt Date: 20050829
  Transmission Date: 20060701
  Serious: Yes (Hospitalization)
  Sender: FDA-Public Use
  Company Number: US-MERCK-0508USA04956

PATIENT
  Age: 75 Year
  Sex: Female
  Weight: 57 kg

DRUGS (3)
  1. VIOXX [Suspect]
     Indication: MUSCLE SPASMS
     Route: 048
     Dates: start: 20000101, end: 20030901
  2. VIOXX [Suspect]
     Indication: HERPES ZOSTER
     Route: 048
     Dates: start: 20000101, end: 20030901
  3. TYLENOL (CAPLET) [Concomitant]
     Route: 065

REACTIONS (2)
  - CEREBROVASCULAR ACCIDENT [None]
  - DEHYDRATION [None]
